FAERS Safety Report 6155602-1 (Version None)
Quarter: 2009Q2

REPORT INFORMATION
  Report Type: 
  Country: None (occurrence: None)
  Receive Date: 20090410
  Receipt Date: 20090410
  Transmission Date: 20091009
  Serious: Yes (Life-Threatening, Hospitalization, Other)
  Sender: FDA-Public Use
  Company Number: None

PATIENT
  Age: 61 Year
  Sex: Male
  Weight: 90.7194 kg

DRUGS (1)
  1. REMICADE [Suspect]
     Indication: RHEUMATOID ARTHRITIS
     Dosage: UNKNOWN EVERY 8 WEEKS IV DRIP
     Route: 041
     Dates: start: 20050105, end: 20080904

REACTIONS (4)
  - CARDIAC DISORDER [None]
  - LIVER ABSCESS [None]
  - MALAISE [None]
  - THROMBOSIS [None]
